FAERS Safety Report 10152597 (Version 1)
Quarter: 2014Q2

REPORT INFORMATION
  Report Type: Spontaneous
  Country: US (occurrence: None)
  Receive Date: 20140502
  Receipt Date: 20140502
  Transmission Date: 20141212
  Serious: Yes (Death)
  Sender: FDA-Public Use
  Company Number: None

PATIENT
  Age: 18 Year
  Sex: Female

DRUGS (1)
  1. TOBRAMYCIN [Suspect]
     Indication: CYSTIC FIBROSIS
     Dosage: 300MG, QD 28 DAY ON 28 OFF, INHALATION VIA NEBULIZER
     Route: 055
     Dates: start: 20140311, end: 20140411

REACTIONS (1)
  - Death [None]
